FAERS Safety Report 21608457 (Version 1)
Quarter: 2022Q4

REPORT INFORMATION
  Report Type: Spontaneous
  Country: KR (occurrence: KR)
  Receive Date: 20221117
  Receipt Date: 20221117
  Transmission Date: 20230112
  Serious: No
  Sender: FDA-Public Use
  Company Number: KR-PFIZER INC-202201300441

PATIENT
  Age: 86 Year
  Sex: Female

DRUGS (3)
  1. PAXLOVID [Suspect]
     Active Substance: NIRMATRELVIR\RITONAVIR
     Indication: COVID-19 treatment
     Dosage: 1 PINK TABLET AND 1 WHITE TABLET, FIRST TOOK IT IN THE EVENING
     Route: 048
     Dates: start: 20221112
  2. PAXLOVID [Suspect]
     Active Substance: NIRMATRELVIR\RITONAVIR
     Dosage: TOOK 3 PINK TABLETS IN THE MORNING
     Dates: start: 20221113
  3. PAXLOVID [Suspect]
     Active Substance: NIRMATRELVIR\RITONAVIR
     Dosage: 1 PINK TABLET AND 1 WHITE TABLET IN THE EVENING
     Dates: start: 20221113

REACTIONS (4)
  - Incorrect dose administered [Unknown]
  - Headache [Unknown]
  - Lethargy [Unknown]
  - Dry mouth [Unknown]

NARRATIVE: CASE EVENT DATE: 20221112
